FAERS Safety Report 4399498-7 (Version None)
Quarter: 2004Q3

REPORT INFORMATION
  Report Type: 
  Country: None (occurrence: None)
  Receive Date: 20040712
  Receipt Date: 20020307
  Transmission Date: 20050211
  Serious: Yes (Death, Hospitalization)
  Sender: FDA-Public Use
  Company Number: E131100

PATIENT
  Age: 63 Year
  Sex: Male

DRUGS (12)
  1. (OXALIPLATIN) - SOLUTION [Suspect]
     Indication: COLORECTAL CANCER METASTATIC
     Dosage: 160 MG Q2W INTRAVENOUS NOS
     Route: 042
     Dates: start: 20011120, end: 20011120
  2. FLUOROURACIL [Suspect]
     Dosage: 2740 MG Q2W INTRAVENOUS NOS
     Route: 042
     Dates: start: 20011120, end: 20011121
  3. LEUCOVORIN CALCIUM [Suspect]
     Dosage: 740 MG Q2W INTRAVENOUS NOS
     Route: 042
     Dates: start: 20011120, end: 20011121
  4. NAVOBAN (TROPISETRON HCL) [Concomitant]
  5. DEXAMETHASONE [Concomitant]
  6. ENALAPRIL MALEATE [Concomitant]
  7. METOPROLOL TARTRATE [Concomitant]
  8. TRAMAL (TRAMADOL HCL) [Concomitant]
  9. PANTOLOC (PANTOPRAZOLE) [Concomitant]
  10. LOVENOX [Concomitant]
  11. VOLTAREN [Concomitant]
  12. HALCION [Concomitant]

REACTIONS (13)
  - ABDOMINAL PAIN [None]
  - ANAEMIA [None]
  - ASTHENIA [None]
  - COLORECTAL CANCER METASTATIC [None]
  - CULTURE URINE POSITIVE [None]
  - DIARRHOEA [None]
  - ENTEROCOCCAL INFECTION [None]
  - ESCHERICHIA INFECTION [None]
  - FATIGUE [None]
  - LEUKOPENIA [None]
  - MALIGNANT NEOPLASM PROGRESSION [None]
  - PYREXIA [None]
  - THROMBOCYTOPENIA [None]
